FAERS Safety Report 5304462-7 (Version None)
Quarter: 2007Q2

REPORT INFORMATION
  Report Type: 
  Country: None (occurrence: None)
  Receive Date: 20070423
  Receipt Date: 20070420
  Transmission Date: 20071010
  Serious: Yes (Death)
  Sender: FDA-Public Use
  Company Number: JP-BRISTOL-MYERS SQUIBB COMPANY-13755418

PATIENT
  Age: 29 Year
  Sex: Male

DRUGS (2)
  1. PARAPLATIN [Suspect]
     Indication: GERM CELL CANCER
     Route: 042
  2. VEPESID [Suspect]
     Indication: GERM CELL CANCER
     Route: 042

REACTIONS (1)
  - INTERSTITIAL LUNG DISEASE [None]
